FAERS Safety Report 7764413 (Version 3)
Quarter: 2014Q1

REPORT INFORMATION
  Report Type: Spontaneous
  Country: FR (occurrence: FR)
  Receive Date: 20110118
  Receipt Date: 20140110
  Transmission Date: 20141002
  Serious: Yes (Hospitalization, Other)
  Sender: FDA-Public Use
  Company Number: FR-WATSON-2010-16754

PATIENT
  Age: 2 Year
  Sex: Male

DRUGS (3)
  1. SALBUTAMOL [Suspect]
     Indication: PRODUCT USED FOR UNKNOWN INDICATION
     Dosage: 2 1/2 MG INHALED X 1, 4 TIMES PER DAY
     Route: 055
     Dates: start: 20101230, end: 20101231
  2. SOLU MEDROL [Concomitant]
     Indication: ASTHMA
     Dosage: UNK
     Route: 042
     Dates: start: 20101230, end: 20101231
  3. PERFALGAN [Suspect]
     Indication: PRODUCT USED FOR UNKNOWN INDICATION
     Dosage: UNK
     Dates: start: 20101231, end: 20101231

REACTIONS (2)
  - Oxygen saturation decreased [Recovered/Resolved]
  - Respiratory disorder [Recovered/Resolved]
